FAERS Safety Report 10803844 (Version 1)
Quarter: 2015Q1

REPORT INFORMATION
  Report Type: Spontaneous
  Country: US (occurrence: US)
  Receive Date: 20150217
  Receipt Date: 20150217
  Transmission Date: 20150721
  Serious: No
  Sender: FDA-Public Use
  Company Number: US-009507513-1502USA007092

PATIENT

DRUGS (1)
  1. JANUVIA [Suspect]
     Active Substance: SITAGLIPTIN PHOSPHATE
     Indication: TYPE 2 DIABETES MELLITUS
     Dosage: JANUVIA 100 MG/ ONCE DAILY
     Route: 048
     Dates: end: 20150213

REACTIONS (2)
  - Glycosylated haemoglobin increased [Unknown]
  - Weight decreased [Unknown]
